FAERS Safety Report 9866215 (Version 1)
Quarter: 2014Q1

REPORT INFORMATION
  Report Type: Spontaneous
  Country: US (occurrence: US)
  Receive Date: 20140203
  Receipt Date: 20140203
  Transmission Date: 20141002
  Serious: No
  Sender: FDA-Public Use
  Company Number: US-ALLERGAN-1317458US

PATIENT
  Age: 93 Year
  Sex: Female

DRUGS (2)
  1. RESTASIS [Suspect]
     Indication: PRODUCT USED FOR UNKNOWN INDICATION
  2. REFRESH TEARS [Concomitant]
     Indication: PRODUCT USED FOR UNKNOWN INDICATION

REACTIONS (5)
  - Incorrect product storage [Unknown]
  - Eye pain [Unknown]
  - Vision blurred [Unknown]
  - Eye pruritus [Unknown]
  - Lacrimation increased [Unknown]
